FAERS Safety Report 16652838 (Version 1)
Quarter: 2019Q3

REPORT INFORMATION
  Report Type: Report from Study
  Country: US (occurrence: US)
  Receive Date: 20190731
  Receipt Date: 20190731
  Transmission Date: 20191004
  Serious: Yes (Hospitalization)
  Sender: FDA-Public Use
  Company Number: US-ADAMAS PHARMA, LLC-2019ADA00620

PATIENT
  Age: 67 Year
  Sex: Female
  Weight: 58.96 kg

DRUGS (14)
  1. SINEMET [Suspect]
     Active Substance: CARBIDOPA\LEVODOPA
     Dosage: 1 TABLETS, 4X/DAY
     Route: 048
     Dates: end: 2019
  2. MYRBETRIQ [Concomitant]
     Active Substance: MIRABEGRON
     Dosage: 1 CAPSULES, 1X/DAY
  3. LOTREL [Concomitant]
     Active Substance: AMLODIPINE BESYLATE\BENAZEPRIL HYDROCHLORIDE
     Dosage: UNK, AS NEEDED
     Route: 048
  4. SINGULAIR [Concomitant]
     Active Substance: MONTELUKAST SODIUM
     Dosage: UNK
  5. GOCOVRI [Suspect]
     Active Substance: AMANTADINE
     Indication: DYSKINESIA
     Dosage: 137 MG, 1X/DAY AT BEDTIME
     Route: 048
     Dates: start: 20190223, end: 20190301
  6. SINEMET [Suspect]
     Active Substance: CARBIDOPA\LEVODOPA
     Dosage: 1 TABLETS, 3X/DAY
     Route: 048
     Dates: start: 201907
  7. PROZAC [Concomitant]
     Active Substance: FLUOXETINE HYDROCHLORIDE
     Dosage: 40 MG, 1X/DAY
  8. BELSOMRA [Concomitant]
     Active Substance: SUVOREXANT
     Dosage: UNK, 1X/DAY AT NIGHT
  9. MULTIVITAMIN [Concomitant]
     Active Substance: VITAMINS
     Dosage: UNK
  10. GOCOVRI [Suspect]
     Active Substance: AMANTADINE
     Dosage: 274 MG, 1X/DAY AT BEDTIME
     Route: 048
     Dates: start: 20190302
  11. SINEMET [Suspect]
     Active Substance: CARBIDOPA\LEVODOPA
     Dosage: 8 TABLETS PER DAY
     Route: 048
  12. SINEMET [Suspect]
     Active Substance: CARBIDOPA\LEVODOPA
     Dosage: 1 TABLETS, 3X/DAY
     Route: 048
     Dates: end: 201906
  13. SINEMET [Suspect]
     Active Substance: CARBIDOPA\LEVODOPA
     Dosage: 1.5 TABLETS, 4X/DAY
     Route: 048
     Dates: end: 201907
  14. CALCIUM [Concomitant]
     Active Substance: CALCIUM
     Dosage: UNK

REACTIONS (12)
  - Confusional state [Recovered/Resolved]
  - Fall [Not Recovered/Not Resolved]
  - Therapeutic product effect incomplete [Unknown]
  - Agitation [Recovered/Resolved]
  - Dyskinesia [Recovering/Resolving]
  - Ataxia [Unknown]
  - Drug ineffective [Recovering/Resolving]
  - Amnesia [Not Recovered/Not Resolved]
  - Dizziness [Not Recovered/Not Resolved]
  - Hallucination [Unknown]
  - Subdural haematoma [Unknown]
  - Muscular weakness [Unknown]

NARRATIVE: CASE EVENT DATE: 2019
